FAERS Safety Report 20261694 (Version 1)
Quarter: 2021Q4

REPORT INFORMATION
  Report Type: Spontaneous
  Country: US (occurrence: US)
  Receive Date: 20211231
  Receipt Date: 20211231
  Transmission Date: 20220303
  Serious: Yes (Other)
  Sender: FDA-Public Use
  Company Number: US-SA-SAC20211227000936

PATIENT
  Age: 50 Year
  Sex: Female

DRUGS (12)
  1. AUBAGIO [Suspect]
     Active Substance: TERIFLUNOMIDE
     Indication: Multiple sclerosis
     Dosage: 14 MG, QD
     Route: 048
  2. BENZONATATE [Concomitant]
     Active Substance: BENZONATATE
  3. METHYLPREDNISOLONE [Concomitant]
     Active Substance: METHYLPREDNISOLONE
  4. ELIQUIS [Concomitant]
     Active Substance: APIXABAN
  5. CEFDINIR [Concomitant]
     Active Substance: CEFDINIR
  6. METRONIDAZOLE [Concomitant]
     Active Substance: METRONIDAZOLE
  7. PREDNISONE [Concomitant]
     Active Substance: PREDNISONE
  8. ONDANSETRON [Concomitant]
     Active Substance: ONDANSETRON
  9. BISACODYL [Concomitant]
     Active Substance: BISACODYL
  10. LISINOPRIL [Concomitant]
     Active Substance: LISINOPRIL
  11. PREMARIN [Concomitant]
     Active Substance: ESTROGENS, CONJUGATED
  12. GARYLYTE [Concomitant]

REACTIONS (2)
  - Multiple sclerosis relapse [Unknown]
  - Product dose omission issue [Unknown]
